FAERS Safety Report 14533336 (Version 1)
Quarter: 2018Q1

REPORT INFORMATION
  Report Type: Report from Study
  Country: None (occurrence: US)
  Receive Date: 20180215
  Receipt Date: 20180215
  Transmission Date: 20180509
  Serious: Yes (Hospitalization, Other)
  Sender: FDA-Public Use
  Company Number: US-ABBVIE-18K-163-2244810-00

PATIENT
  Age: 45 Year
  Sex: Female
  Weight: 112.14 kg

DRUGS (1)
  1. HUMIRA [Suspect]
     Active Substance: ADALIMUMAB
     Indication: PSORIATIC ARTHROPATHY
     Route: 058
     Dates: start: 201708, end: 201712

REACTIONS (4)
  - Gait disturbance [Recovering/Resolving]
  - Procedural pain [Recovered/Resolved]
  - Osteoporosis [Recovering/Resolving]
  - Hip fracture [Recovered/Resolved]

NARRATIVE: CASE EVENT DATE: 2017
